FAERS Safety Report 8600469-2 (Version None)
Quarter: 2012Q3

REPORT INFORMATION
  Report Type: 
  Country: None (occurrence: None)
  Receive Date: 20120817
  Receipt Date: 20120808
  Transmission Date: 20120928
  Serious: Yes (Other)
  Sender: FDA-Public Use
  Company Number: GB-ELI_LILLY_AND_COMPANY-GB201207007984

PATIENT
  Age: 41 Year
  Sex: Female

DRUGS (2)
  1. PROZAC [Suspect]
     Dosage: 1 DF, UNKNOWN
     Dates: start: 20120714
  2. CLOZARIL [Concomitant]
     Indication: SCHIZOPHRENIA
     Dosage: 1 DF, UNKNOWN
     Route: 048
     Dates: start: 20090113

REACTIONS (3)
  - DYSPNOEA [None]
  - DRUG INTERACTION [None]
  - SEDATION [None]
